FAERS Safety Report 8461311-6 (Version None)
Quarter: 2012Q2

REPORT INFORMATION
  Report Type: 
  Country: None (occurrence: None)
  Receive Date: 20120620
  Receipt Date: 20120620
  Transmission Date: 20120825
  Serious: No
  Sender: FDA-Public Use
  Company Number: None

PATIENT
  Sex: Female
  Weight: 61.2356 kg

DRUGS (2)
  1. ZETIA [Suspect]
     Dosage: 1 PILL 1 A DAY
     Dates: start: 20120515
  2. ZETIA [Suspect]
     Dosage: 1 PILL 1 A DAY
     Dates: start: 20120514

REACTIONS (2)
  - MYALGIA [None]
  - ABDOMINAL PAIN LOWER [None]
